FAERS Safety Report 24922094 (Version 7)
Quarter: 2025Q2

REPORT INFORMATION
  Report Type: Report from Study
  Country: ES (occurrence: ES)
  Receive Date: 20250204
  Receipt Date: 20250414
  Transmission Date: 20250717
  Serious: Yes (Other)
  Sender: ABBVIE
  Company Number: ES-ABBVIE-6116451

PATIENT
  Age: 73 Year
  Sex: Male

DRUGS (2)
  1. CARBIDOPA\LEVODOPA [Suspect]
     Active Substance: CARBIDOPA\LEVODOPA
     Indication: Parkinson^s disease
     Route: 050
     Dates: start: 20200312, end: 20250210
  2. CARBIDOPA\LEVODOPA [Suspect]
     Active Substance: CARBIDOPA\LEVODOPA
     Route: 050
     Dates: start: 202502, end: 20250326

REACTIONS (7)
  - Pulmonary thrombosis [Recovering/Resolving]
  - Device issue [Unknown]
  - Stoma site haemorrhage [Recovered/Resolved]
  - Wheezing [Not Recovered/Not Resolved]
  - Embedded device [Not Recovered/Not Resolved]
  - Nasopharyngitis [Unknown]
  - Device issue [Recovered/Resolved]

NARRATIVE: CASE EVENT DATE: 20240224
